FAERS Safety Report 9197295 (Version 1)
Quarter: 2013Q1

REPORT INFORMATION
  Report Type: Report from Study
  Country: DE (occurrence: DE)
  Receive Date: 20130328
  Receipt Date: 20130328
  Transmission Date: 20140127
  Serious: Yes (Hospitalization)
  Sender: FDA-Public Use
  Company Number: DE-ROCHE-777245

PATIENT
  Age: 54 Year
  Sex: Male
  Weight: 130 kg

DRUGS (4)
  1. BEVACIZUMAB [Suspect]
     Indication: COLON CANCER METASTATIC
     Route: 042
  2. BEVACIZUMAB [Suspect]
     Indication: COLON CANCER
  3. FOLINIC ACID [Concomitant]
     Indication: COLON CANCER METASTATIC
     Route: 042
  4. FLUOROURACIL [Concomitant]
     Indication: COLON CANCER METASTATIC
     Route: 042
     Dates: start: 201011, end: 201104

REACTIONS (3)
  - Large intestine perforation [Recovered/Resolved]
  - Pain [Recovered/Resolved]
  - Gastrointestinal disorder [Recovered/Resolved]
